FAERS Safety Report 23750199 (Version 2)
Quarter: 2024Q2

REPORT INFORMATION
  Report Type: Spontaneous
  Country: US (occurrence: US)
  Receive Date: 20240417
  Receipt Date: 20240426
  Transmission Date: 20240716
  Serious: Yes (Other)
  Sender: FDA-Public Use
  Company Number: US-SUN PHARMACEUTICAL INDUSTRIES LTD-2024R1-441751

PATIENT
  Age: 29 Year
  Sex: Male

DRUGS (3)
  1. TESTOSTERONE [Suspect]
     Active Substance: TESTOSTERONE
     Indication: Hypogonadism
     Route: 065
  2. ANASTROZOLE [Concomitant]
     Active Substance: ANASTROZOLE
     Indication: Hypogonadism
     Dosage: UNK
     Route: 065
  3. CLOMIPHENE [Concomitant]
     Active Substance: CLOMIPHENE
     Indication: Hypogonadism
     Dosage: UNK
     Route: 065

REACTIONS (1)
  - Toxic cardiomyopathy [Unknown]
